FAERS Safety Report 8943407 (Version 1)
Quarter: 2012Q4

REPORT INFORMATION
  Report Type: 
  Country: DE (occurrence: DE)
  Receive Date: 20121204
  Receipt Date: 20121204
  Transmission Date: 20130627
  Serious: Yes (Other)
  Sender: FDA-Public Use
  Company Number: DE-EISAI INC-E2007-00958-SPO-DE

PATIENT
  Age: 59 Year
  Sex: Female
  Weight: 118 kg

DRUGS (13)
  1. FYCOMPA [Suspect]
     Indication: NYSTAGMUS
     Route: 048
     Dates: start: 20121115, end: 201211
  2. L-THYROXIN [Concomitant]
     Indication: HASHIMOTO^S THYROIDITIS
     Dosage: 150 microgram/day
     Route: 048
  3. PLAVIX [Concomitant]
     Indication: CORONARY HEART DISEASE
     Dosage: 75 mg/day
     Route: 048
  4. PRAVIDEL [Concomitant]
     Indication: DRUG USE FOR UNKNOWN INDICATION
     Dosage: 2.5 mg/day
     Route: 048
  5. CYMBALTA [Concomitant]
     Indication: DEPRESSION
     Dosage: 60 mg/day
     Route: 048
  6. SIMVAHEXAL [Concomitant]
     Indication: HYPERLIPIDEMIA
     Dosage: 20 mg/day
     Route: 048
  7. CALCIVIT D 3 [Concomitant]
     Indication: OSTEOPOROSIS
     Dosage: unknown
     Route: 048
  8. VIGANTOLETTEN [Concomitant]
     Indication: OSTEOPOROSIS
     Route: 048
  9. NEXIUM [Concomitant]
     Indication: GASTROESOPHAGEAL REFLUX DISEASE
     Dosage: unknown
     Route: 048
  10. PROTELOS [Concomitant]
     Indication: OSTEOPOROSIS
     Dosage: 2 gram/day
     Route: 048
  11. SATIVEX SPRAY [Concomitant]
     Indication: SPASTICITY
     Dosage: unknown
  12. METOPROLOLE [Concomitant]
     Indication: HYPERTENSION
     Dosage: 50 mg/day
     Route: 048
  13. ENALAPRIL MALEATE [Concomitant]
     Indication: HYPERTENSION
     Dosage: 10 mg/day
     Route: 048

REACTIONS (1)
  - Nightmare [Recovered/Resolved]
